FAERS Safety Report 23080657 (Version 1)
Quarter: 2023Q4

REPORT INFORMATION
  Report Type: Spontaneous
  Country: KR (occurrence: None)
  Receive Date: 20231018
  Receipt Date: 20231018
  Transmission Date: 20240109
  Serious: Yes (Hospitalization)
  Sender: FDA-Public Use
  Company Number: 2023A237271

PATIENT
  Age: 74 Year
  Sex: Female
  Weight: 57 kg

DRUGS (13)
  1. CRESTOR [Suspect]
     Active Substance: ROSUVASTATIN CALCIUM
     Indication: Hyperlipidaemia
     Dosage: 1 DOSAGE FORM
     Route: 048
     Dates: start: 20210519
  2. CYCLOPHOSPHAMIDE [Suspect]
     Active Substance: CYCLOPHOSPHAMIDE
     Indication: Chemotherapy
     Dosage: 1000 MILLIGRAM1000.0MG UNKNOWN
     Route: 042
     Dates: start: 20210602, end: 20210929
  3. DOXORUBICIN HYDROCHLORIDE [Suspect]
     Active Substance: DOXORUBICIN HYDROCHLORIDE
     Indication: Chemotherapy
     Dosage: 70 MILLIGRAM
     Route: 042
     Dates: start: 20210602, end: 20210929
  4. VINCRISTINE SULFATE [Suspect]
     Active Substance: VINCRISTINE SULFATE
     Indication: Chemotherapy
     Dosage: 2 MILLIGRAM2.0MG UNKNOWN
     Route: 042
     Dates: start: 20210602, end: 20210929
  5. ACETAMINOPHEN [Suspect]
     Active Substance: ACETAMINOPHEN
     Dosage: 650 MILLIGRAM650.0MG UNKNOWN
     Route: 048
     Dates: start: 20210602, end: 20210929
  6. CHLORPHENIRAMINE MALEATE [Suspect]
     Active Substance: CHLORPHENIRAMINE MALEATE
     Dosage: 4 MILLIGRAM4.0MG UNKNOWN
     Route: 042
     Dates: start: 20210602, end: 20210929
  7. PALONOSETRON HYDROCHLORIDE [Suspect]
     Active Substance: PALONOSETRON HYDROCHLORIDE
     Dosage: .25 MILLIGRAM UNKNOWN
     Route: 042
     Dates: start: 20210602, end: 20210929
  8. TELMISARTAN [Suspect]
     Active Substance: TELMISARTAN
     Indication: Hypertension
     Dosage: 1 DOSAGE FORM
     Route: 048
     Dates: start: 20210519
  9. AMLODIPINE BESYLATE [Suspect]
     Active Substance: AMLODIPINE BESYLATE
     Indication: Hypertension
     Dosage: .5 DOSAGE FORM
     Route: 048
     Dates: start: 20210519
  10. FUROSEMIDE [Suspect]
     Active Substance: FUROSEMIDE
     Indication: Pleural effusion
     Route: 048
     Dates: start: 20210604
  11. FUROSEMIDE [Suspect]
     Active Substance: FUROSEMIDE
     Indication: Pleural effusion
     Dosage: 1 DOSAGE FORM
     Route: 042
     Dates: start: 20210531
  12. PREDNISOLONE [Suspect]
     Active Substance: PREDNISOLONE
     Indication: Lymphoma
     Route: 048
     Dates: start: 20210531
  13. PREDNISOLONE [Suspect]
     Active Substance: PREDNISOLONE
     Indication: Lymphoma
     Dosage: 6 DOSAGE FORM
     Route: 048
     Dates: start: 20210531

REACTIONS (1)
  - Neutrophil count decreased [Recovered/Resolved]

NARRATIVE: CASE EVENT DATE: 20210705
